FAERS Safety Report 9398104 (Version 1)
Quarter: 2013Q3

REPORT INFORMATION
  Report Type: Spontaneous
  Country: US (occurrence: US)
  Receive Date: 20130712
  Receipt Date: 20130712
  Transmission Date: 20140515
  Serious: No
  Sender: FDA-Public Use
  Company Number: US-GLAXOSMITHKLINE-A0982880A

PATIENT
  Age: 77 Year
  Sex: Female

DRUGS (10)
  1. FLOVENT [Suspect]
     Indication: ASTHMA
     Dosage: 2PUFF TWICE PER DAY
     Route: 055
     Dates: start: 200406
  2. LISINOPRIL [Concomitant]
  3. PRO-AIR [Concomitant]
  4. GLYBURIDE [Concomitant]
  5. VERAPAMIL [Concomitant]
  6. FUROSEMIDE [Concomitant]
  7. SIMVASTATIN [Concomitant]
  8. AMBIEN [Concomitant]
  9. BRIMONIDINE [Concomitant]
  10. TRAVATAN [Concomitant]

REACTIONS (4)
  - Dysgeusia [Unknown]
  - Dry throat [Unknown]
  - Sputum abnormal [Unknown]
  - Product quality issue [Unknown]
